FAERS Safety Report 6443875-7 (Version None)
Quarter: 2009Q4

REPORT INFORMATION
  Report Type: 
  Country: None (occurrence: None)
  Receive Date: 20091117
  Receipt Date: 20091112
  Transmission Date: 20100525
  Serious: Yes (Other)
  Sender: FDA-Public Use
  Company Number: US-MERCK-0909USA04153

PATIENT
  Age: 34 Year
  Sex: Male

DRUGS (1)
  1. SINGULAIR [Suspect]
     Route: 065

REACTIONS (2)
  - DEPRESSION [None]
  - SUICIDAL IDEATION [None]
